FAERS Safety Report 17105684 (Version 1)
Quarter: 2019Q4

REPORT INFORMATION
  Report Type: Spontaneous
  Country: GB (occurrence: GB)
  Receive Date: 20191203
  Receipt Date: 20191203
  Transmission Date: 20200122
  Serious: Yes (Hospitalization)
  Sender: FDA-Public Use
  Company Number: GB-TEVA-2019-GB-1144312

PATIENT
  Age: 24 Year
  Sex: Female
  Weight: 68 kg

DRUGS (10)
  1. QUETIAPINE. [Concomitant]
     Active Substance: QUETIAPINE
     Dosage: AT NIGHT , 2 DOSAGE FORMS 1 DAYS
     Dates: start: 20190517, end: 20190930
  2. DEPO-PROVERA [Concomitant]
     Active Substance: MEDROXYPROGESTERONE ACETATE
     Dates: start: 20190312
  3. IBUPROFEN. [Suspect]
     Active Substance: IBUPROFEN
     Dosage: 200MG/5ML
     Route: 048
     Dates: start: 20190927
  4. CETRABEN EMOLLIENT CREAM [Concomitant]
     Dates: start: 20171120
  5. DULOXETINE. [Concomitant]
     Active Substance: DULOXETINE
     Dosage: 1 DOSAGE FORMS 1 DAYS
     Dates: start: 20171120
  6. PIZOTIFEN [Concomitant]
     Active Substance: PIZOTYLINE
     Dosage: AT NIGHT , 2 DOSAGE FORMS 1 DAYS -
     Dates: start: 20190604
  7. CHLORHEXIDINE GLUCONATE. [Concomitant]
     Active Substance: CHLORHEXIDINE GLUCONATE
     Dosage: WASH TWICE A DAY
     Dates: start: 20191024
  8. FLUCLOXACILLIN [Concomitant]
     Active Substance: FLUCLOXACILLIN
     Dosage: TAKE FOR 1 MONTH , 2 DOSAGE FORMS 1 DAYS
     Dates: start: 20191024
  9. CLOBETASOL PROPIONATE. [Concomitant]
     Active Substance: CLOBETASOL PROPIONATE
     Dosage: APPLY 1-2 TIMES/DAY THINLY
     Dates: start: 20190821, end: 20190904
  10. ATOMOXETINE. [Concomitant]
     Active Substance: ATOMOXETINE HYDROCHLORIDE
     Dosage: 1 DOSAGE FORMS 1 DAYS
     Dates: start: 20171120

REACTIONS (1)
  - Intestinal cyst [Unknown]

NARRATIVE: CASE EVENT DATE: 20191025
